FAERS Safety Report 11414020 (Version 2)
Quarter: 2015Q3

REPORT INFORMATION
  Report Type: Spontaneous
  Country: CH (occurrence: FR)
  Receive Date: 20150824
  Receipt Date: 20150903
  Transmission Date: 20151125
  Serious: Yes (Hospitalization)
  Sender: FDA-Public Use
  Company Number: CH-LPDUSPRD-20150617

PATIENT
  Age: 18 Year
  Sex: Female

DRUGS (7)
  1. CELLCEPT [Concomitant]
     Active Substance: MYCOPHENOLATE MOFETIL\MYCOPHENOLATE MOFETIL HYDROCHLORIDE
     Dosage: DOSE NOT PROVIDED
     Route: 065
  2. BACTRIM [Concomitant]
     Active Substance: SULFAMETHOXAZOLE\TRIMETHOPRIM
     Dosage: DOSE NOT PROVIDED
     Route: 065
  3. UVEDOSE [Concomitant]
     Active Substance: CHOLECALCIFEROL
     Dosage: DOSE NOT PROVIDED
     Route: 065
  4. CORTANCYL [Concomitant]
     Active Substance: PREDNISONE
     Dosage: DOSE NOT PROVIDED
     Route: 065
  5. FERINJECT [Suspect]
     Active Substance: FERRIC CARBOXYMALTOSE
     Dosage: 1000 MG (1 IN 1 TOTAL)
     Route: 041
     Dates: start: 20150721, end: 20150721
  6. HYPERIUM [Concomitant]
     Active Substance: RILMENIDINE PHOSPHATE
     Dosage: DOSE NOT PROVIDED
     Route: 065
  7. NEORAL [Concomitant]
     Active Substance: CYCLOSPORINE
     Dosage: DOSE NOT PROVIDED
     Route: 065

REACTIONS (3)
  - Laryngeal dyspnoea [Recovered/Resolved]
  - Musculoskeletal pain [Recovered/Resolved]
  - Feeling cold [Recovered/Resolved]

NARRATIVE: CASE EVENT DATE: 20150721
